FAERS Safety Report 5520906-X (Version None)
Quarter: 2007Q4

REPORT INFORMATION
  Report Type: 
  Country: None (occurrence: None)
  Receive Date: 20071119
  Receipt Date: 20071113
  Transmission Date: 20080405
  Serious: Yes (Hospitalization)
  Sender: FDA-Public Use
  Company Number: IE-WYE-G00604707

PATIENT
  Age: 44 Year
  Sex: Female

DRUGS (2)
  1. EFFEXOR [Suspect]
  2. FLUOXETINE HYDROCHLORIDE [Concomitant]
     Dosage: UNKNOWN

REACTIONS (10)
  - AGITATION [None]
  - BLOOD PRESSURE INCREASED [None]
  - CHILLS [None]
  - DRUG WITHDRAWAL SYNDROME [None]
  - HEADACHE [None]
  - INSOMNIA [None]
  - NAUSEA [None]
  - RASH [None]
  - TACHYCARDIA [None]
  - WEIGHT DECREASED [None]
